FAERS Safety Report 6834408-1 (Version None)
Quarter: 2010Q3

REPORT INFORMATION
  Report Type: 
  Country: None (occurrence: None)
  Receive Date: 20100712
  Receipt Date: 20070711
  Transmission Date: 20110219
  Serious: No
  Sender: FDA-Public Use
  Company Number: US-PFIZER INC-2007026785

PATIENT
  Sex: Female
  Weight: 49 kg

DRUGS (12)
  1. CHANTIX [Suspect]
     Indication: SMOKING CESSATION THERAPY
     Route: 048
     Dates: start: 20070323
  2. CHANTIX [Suspect]
     Indication: NICOTINE DEPENDENCE
  3. NAPROXEN [Suspect]
  4. SULAR [Concomitant]
  5. FEXOFENADINE [Concomitant]
     Indication: HYPERSENSITIVITY
  6. LISINOPRIL [Concomitant]
  7. TRAMADOL [Concomitant]
  8. CALCIUM [Concomitant]
  9. PREMARIN [Concomitant]
  10. FELODIPINE [Concomitant]
  11. ALBUTEROL [Concomitant]
  12. PRINZIDE [Concomitant]

REACTIONS (5)
  - ABDOMINAL DISCOMFORT [None]
  - ABDOMINAL PAIN UPPER [None]
  - NAUSEA [None]
  - VOMITING [None]
  - WEIGHT DECREASED [None]
